FAERS Safety Report 6007249-5 (Version None)
Quarter: 2008Q4

REPORT INFORMATION
  Report Type: 
  Country: None (occurrence: None)
  Receive Date: 20081217
  Receipt Date: 20080215
  Transmission Date: 20090506
  Serious: No
  Sender: FDA-Public Use
  Company Number: US-ASTRAZENECA-2008UW02554

PATIENT
  Age: 30328 Day
  Sex: Female
  Weight: 59.1 kg

DRUGS (2)
  1. CRESTOR [Suspect]
     Indication: LIPIDS INCREASED
     Route: 048
     Dates: start: 20080119, end: 20080206
  2. COQ10 [Concomitant]
     Indication: MYALGIA
     Route: 048
     Dates: start: 20080119

REACTIONS (1)
  - GLOSSODYNIA [None]
